FAERS Safety Report 15819568 (Version 1)
Quarter: 2019Q1

REPORT INFORMATION
  Report Type: Spontaneous
  Country: CH (occurrence: CH)
  Receive Date: 20190114
  Receipt Date: 20190114
  Transmission Date: 20190417
  Serious: Yes (Life-Threatening, Hospitalization)
  Sender: FDA-Public Use
  Company Number: CH-TEVA-2019-CH-997238

PATIENT
  Sex: Female
  Weight: 76 kg

DRUGS (33)
  1. GENTAMICIN. [Concomitant]
     Active Substance: GENTAMICIN
     Indication: ENDOCARDITIS
     Dosage: 120 MILLIGRAM DAILY;
     Route: 042
     Dates: start: 20180907, end: 20180910
  2. DAFALGAN [Concomitant]
     Active Substance: ACETAMINOPHEN
     Dosage: MAX. 2X/DAY
     Route: 048
     Dates: start: 20180903
  3. OXYNORM [Concomitant]
     Active Substance: OXYCODONE HYDROCHLORIDE
     Dosage: UP TO 5X/DAY
     Route: 048
     Dates: start: 20180925
  4. OXYNORM [Concomitant]
     Active Substance: OXYCODONE HYDROCHLORIDE
     Dosage: 2.5 MILLIGRAM DAILY;
     Route: 048
     Dates: start: 20180904, end: 20181026
  5. FLOXAPEN [Suspect]
     Active Substance: FLUCLOXACILLIN
     Indication: STAPHYLOCOCCAL BACTERAEMIA
  6. CO-VALSARTAN [HYDROCHLOROTHIAZIDE\VALSARTAN] [Suspect]
     Active Substance: HYDROCHLOROTHIAZIDE\VALSARTAN
     Dosage: 80/12.5 MG; DAILY
     Dates: start: 20181002, end: 20181008
  7. XARELTO [Suspect]
     Active Substance: RIVAROXABAN
     Dosage: 15 MILLIGRAM DAILY; A ONCE DAILY DOSE
     Dates: start: 20180918, end: 20181015
  8. FRAGMIN [Concomitant]
     Active Substance: DALTEPARIN SODIUM
     Dosage: 7500 IU (INTERNATIONAL UNIT) DAILY;
     Route: 058
     Dates: start: 20180914, end: 20180916
  9. TARGIN [Concomitant]
     Active Substance: NALOXONE HYDROCHLORIDE\OXYCODONE HYDROCHLORIDE
     Dosage: 5/2.5 MG
     Route: 048
     Dates: start: 20180903, end: 20180916
  10. SERALIN MEPHA [Suspect]
     Active Substance: SERTRALINE HYDROCHLORIDE
     Indication: DEPRESSION
     Dosage: 50 MILLIGRAM DAILY; ONCE DAILY
  11. CO-VALSARTAN [HYDROCHLOROTHIAZIDE\VALSARTAN] [Suspect]
     Active Substance: HYDROCHLOROTHIAZIDE\VALSARTAN
     Dosage: 80/12.5 MG; DAILY
     Dates: start: 20180906
  12. FRAGMIN [Concomitant]
     Active Substance: DALTEPARIN SODIUM
     Dosage: 10 IU (INTERNATIONAL UNIT) DAILY;
     Route: 058
     Dates: start: 20180918
  13. OXYNORM [Concomitant]
     Active Substance: OXYCODONE HYDROCHLORIDE
     Dosage: UP TO 5X/DAY
     Route: 048
     Dates: start: 20180903, end: 20180909
  14. NOVALGIN (METAMIZOLE SODIUM) [Suspect]
     Active Substance: METAMIZOLE SODIUM
     Indication: PAIN
     Dosage: DAILY
     Dates: start: 20180917, end: 20180922
  15. NOVALGIN (METAMIZOLE SODIUM) [Suspect]
     Active Substance: METAMIZOLE SODIUM
     Dosage: DAILY
     Dates: start: 20180922, end: 20181002
  16. PARACETAMOL [Concomitant]
     Active Substance: ACETAMINOPHEN
     Dosage: MAX. 2X/DAY
     Route: 042
     Dates: start: 20180915
  17. FRAGMIN [Concomitant]
     Active Substance: DALTEPARIN SODIUM
     Dosage: 5000 IU (INTERNATIONAL UNIT) DAILY;
     Route: 058
     Dates: start: 20180905, end: 20180906
  18. ACIDUM FOLICUM STREULI [Concomitant]
     Active Substance: FOLIC ACID
     Dosage: 5 MILLIGRAM DAILY;
     Route: 048
  19. KCL HAUSMANN [Concomitant]
     Dosage: 80 MILLIMOL DAILY; 8X/DAY
     Route: 048
     Dates: start: 20180914, end: 20181012
  20. PRAMIPEXOLE. [Concomitant]
     Active Substance: PRAMIPEXOLE
     Dosage: .75 MILLIGRAM DAILY;
     Route: 048
     Dates: start: 20180903
  21. XYZAL [Concomitant]
     Active Substance: LEVOCETIRIZINE DIHYDROCHLORIDE
     Dosage: 5 MILLIGRAM DAILY;
     Route: 048
     Dates: start: 20180917, end: 20180923
  22. GENTAMICIN. [Concomitant]
     Active Substance: GENTAMICIN
     Indication: STAPHYLOCOCCAL BACTERAEMIA
  23. PARACETAMOL [Concomitant]
     Active Substance: ACETAMINOPHEN
     Dosage: MAX. 2X/DAY
     Route: 042
     Dates: start: 20180904, end: 20180905
  24. PARACETAMOL [Concomitant]
     Active Substance: ACETAMINOPHEN
     Dosage: MAX. 2X/DAY
     Route: 042
     Dates: start: 20180919
  25. KCL HAUSMANN [Concomitant]
     Dosage: 80 MILLIMOL DAILY; 8X/DAY
     Route: 048
     Dates: start: 20180906, end: 20180910
  26. FLOXAPEN [Suspect]
     Active Substance: FLUCLOXACILLIN
     Indication: ENDOCARDITIS
     Dosage: DAILY
     Route: 042
  27. FRAGMIN [Concomitant]
     Active Substance: DALTEPARIN SODIUM
     Dosage: 7500 IU (INTERNATIONAL UNIT) DAILY;
     Route: 058
     Dates: start: 20180903
  28. FRAGMIN [Concomitant]
     Active Substance: DALTEPARIN SODIUM
     Dosage: 7500 IU (INTERNATIONAL UNIT) DAILY;
     Route: 058
     Dates: start: 20180907, end: 20180911
  29. DOMPERIDON MEPHA [Concomitant]
     Dosage: UP TO 1X/DAY
     Route: 048
     Dates: start: 20180919, end: 20180922
  30. LAXOBERON [Concomitant]
     Active Substance: SODIUM PICOSULFATE
     Dosage: 15 DROPS/DAY
     Route: 048
     Dates: start: 20180905
  31. PARACETAMOL [Concomitant]
     Active Substance: ACETAMINOPHEN
     Dosage: 1X/DAY
     Route: 042
     Dates: start: 20180908
  32. OXYNORM [Concomitant]
     Active Substance: OXYCODONE HYDROCHLORIDE
     Dosage: UP TO 5X/DAY
     Route: 048
     Dates: start: 20180911
  33. OXYNORM [Concomitant]
     Active Substance: OXYCODONE HYDROCHLORIDE
     Dosage: UP TO 5X/DAY
     Route: 048
     Dates: start: 20180915

REACTIONS (7)
  - Anaemia [Recovering/Resolving]
  - Pyrexia [Recovering/Resolving]
  - Thrombocytopenia [Recovering/Resolving]
  - Cough [Recovering/Resolving]
  - Oral candidiasis [Recovering/Resolving]
  - Agranulocytosis [Recovering/Resolving]
  - Pancytopenia [Recovering/Resolving]
